FAERS Safety Report 7480745-X (Version None)
Quarter: 2011Q2

REPORT INFORMATION
  Report Type: 
  Country: None (occurrence: None)
  Receive Date: 20110516
  Receipt Date: 20110407
  Transmission Date: 20111010
  Serious: Yes (Hospitalization, Other)
  Sender: FDA-Public Use
  Company Number: US-BAYER-201028621NA

PATIENT
  Age: 25 Year
  Sex: Female
  Weight: 67 kg

DRUGS (8)
  1. YAZ [Suspect]
     Dosage: UNK
     Dates: start: 20071201
  2. SYNTHROID [Concomitant]
     Indication: HYPOTHYROIDISM
     Dosage: 0.05 MG, UNK
     Route: 048
     Dates: start: 20040101
  3. FLAGYL [Concomitant]
     Indication: CLOSTRIDIUM DIFFICILE COLITIS
  4. NAPROSYN [Concomitant]
     Dosage: 500 MG, UNK
     Dates: start: 20081201
  5. PROPRANOLOL [Concomitant]
     Indication: CHEST PAIN
     Dosage: 10 MG, UNK
     Route: 048
     Dates: start: 20080701
  6. YAZ [Suspect]
     Indication: PRODUCT USED FOR UNKNOWN INDICATION
     Dosage: UNK
     Route: 048
     Dates: start: 20061001, end: 20090201
  7. PROPRANOLOL [Concomitant]
     Indication: TACHYCARDIA
  8. FLINTSTONES COMPLETE [Concomitant]
     Dosage: UNK
     Route: 048
     Dates: start: 20080101

REACTIONS (8)
  - GASTROINTESTINAL DISORDER [None]
  - GALLBLADDER INJURY [None]
  - CLOSTRIDIUM DIFFICILE COLITIS [None]
  - POST PROCEDURAL DIARRHOEA [None]
  - CHOLELITHIASIS [None]
  - ABDOMINAL PAIN UPPER [None]
  - PROCEDURAL PAIN [None]
  - NAUSEA [None]
